FAERS Safety Report 20160653 (Version 1)
Quarter: 2021Q4

REPORT INFORMATION
  Report Type: Spontaneous
  Country: US (occurrence: US)
  Receive Date: 20211208
  Receipt Date: 20211208
  Transmission Date: 20220303
  Serious: Yes (Other)
  Sender: FDA-Public Use
  Company Number: US-MYLANLABS-2021M1090657

PATIENT
  Age: 19 Year
  Sex: Female

DRUGS (3)
  1. ADALIMUMAB [Suspect]
     Active Substance: ADALIMUMAB
     Indication: Crohn^s disease
     Dosage: UNK UNK, QW, RECEIVING FOR 7 YEARS
     Route: 065
  2. PREDNISONE [Suspect]
     Active Substance: PREDNISONE
     Indication: Enteritis
     Dosage: 40 MILLIGRAM, QD
     Route: 065
  3. AZATHIOPRINE [Suspect]
     Active Substance: AZATHIOPRINE
     Indication: Crohn^s disease
     Dosage: UNK, BID, WEIGHT-BASED AZATHIOPRINE; STARTED ONE YEAR PRIOR TO THE CURRENT PRESENTATION
     Route: 065

REACTIONS (4)
  - Histoplasmosis disseminated [Unknown]
  - Enterocolitis [Unknown]
  - Ulcer [Unknown]
  - Treatment failure [Unknown]
